FAERS Safety Report 9982162 (Version 1)
Quarter: 2014Q1

REPORT INFORMATION
  Report Type: Spontaneous
  Country: US (occurrence: US)
  Receive Date: 20140307
  Receipt Date: 20140307
  Transmission Date: 20141002
  Serious: No
  Sender: FDA-Public Use
  Company Number: US-ABBVIE-13P-163-1178519-00

PATIENT
  Age: 65 Year
  Sex: Female
  Weight: 71.73 kg

DRUGS (9)
  1. HUMIRA [Suspect]
     Indication: PSORIATIC ARTHROPATHY
     Dates: start: 201310
  2. ASPIRIN [Concomitant]
     Indication: PRODUCT USED FOR UNKNOWN INDICATION
  3. ATENOLOL [Concomitant]
     Indication: HYPERTENSION
  4. LISINOPRIL [Concomitant]
     Indication: HYPERTENSION
  5. PROPAFENONE [Concomitant]
     Indication: ATRIAL FIBRILLATION
  6. CALCIUM [Concomitant]
     Indication: BONE DENSITY ABNORMAL
  7. VITAMIN D [Concomitant]
     Indication: MINERAL SUPPLEMENTATION
  8. FISH OIL [Concomitant]
     Indication: PRODUCT USED FOR UNKNOWN INDICATION
  9. ZOLPIDEM [Concomitant]
     Indication: INSOMNIA

REACTIONS (7)
  - Wrong technique in drug usage process [Recovered/Resolved]
  - Drug dose omission [Unknown]
  - Device failure [Recovered/Resolved]
  - Pain in jaw [Recovered/Resolved]
  - Injection site pain [Not Recovered/Not Resolved]
  - Arthralgia [Not Recovered/Not Resolved]
  - Tooth infection [Unknown]
